FAERS Safety Report 19168304 (Version 2)
Quarter: 2021Q2

REPORT INFORMATION
  Report Type: Other
  Country: JP (occurrence: JP)
  Receive Date: 20210422
  Receipt Date: 20210424
  Transmission Date: 20210717
  Serious: Yes (Other)
  Sender: FDA-Public Use
  Company Number: JP-ROCHE-2813073

PATIENT
  Age: 5 Decade
  Sex: Female
  Weight: 85 kg

DRUGS (7)
  1. TRAMADOL HYDROCHLORIDE. [Concomitant]
     Active Substance: TRAMADOL HYDROCHLORIDE
     Route: 065
  2. BROTIZOLAM [Concomitant]
     Active Substance: BROTIZOLAM
     Route: 048
  3. ARIPIPRAZOLE. [Concomitant]
     Active Substance: ARIPIPRAZOLE
     Route: 048
  4. XELODA [Suspect]
     Active Substance: CAPECITABINE
     Indication: BREAST CANCER
     Dosage: DOSAGE IS UNCERTAIN.
     Route: 041
  5. TAMOXIFEN [Concomitant]
     Active Substance: TAMOXIFEN
     Indication: BREAST CANCER
     Dosage: DOSAGE IS UNCERTAIN.
     Route: 065
  6. TRAMADOL HYDROCHLORIDE. [Concomitant]
     Active Substance: TRAMADOL HYDROCHLORIDE
     Route: 065
  7. ESCITALOPRAM OXALATE. [Concomitant]
     Active Substance: ESCITALOPRAM OXALATE
     Route: 048

REACTIONS (3)
  - Procedural pain [Recovering/Resolving]
  - Oedema [Recovering/Resolving]
  - Dermatitis [Unknown]
